FAERS Safety Report 9275739 (Version 5)
Quarter: 2014Q1

REPORT INFORMATION
  Report Type: Spontaneous
  Country: US (occurrence: US)
  Receive Date: 20130507
  Receipt Date: 20140303
  Transmission Date: 20141002
  Serious: Yes (Hospitalization, Other)
  Sender: FDA-Public Use
  Company Number: US-B.I. PHARMACEUTICALS,INC./RIDGEFIELD-2013-BI-12387BP

PATIENT
  Age: 85 Year
  Sex: Female
  Weight: 82 kg

DRUGS (8)
  1. COMBIVENT [Suspect]
     Indication: CHRONIC OBSTRUCTIVE PULMONARY DISEASE
     Dosage: STRENGTH: 18 MCG / 103 MCG; DAILY DOSE: 144 MCG/824 MCG
     Route: 055
     Dates: start: 1998
  2. COMBIVENT [Suspect]
     Dosage: STRENGTH: 18 MCG / 103 MCG; DAILY DOSE: 144 MCG/824 MCG
     Route: 055
     Dates: end: 201305
  3. COMBIVENT [Suspect]
     Indication: CHRONIC OBSTRUCTIVE PULMONARY DISEASE
     Dosage: STRENGTH: 20 MCG/100 MCG: DAILY DOSE: 80 MCG/400 MCG
     Route: 055
     Dates: start: 20130805
  4. COMBIVENT [Suspect]
     Dosage: STRENGTH: 20 MCG/100 MCG: DAILY DOSE: 80 MCG/400 MCG
     Route: 055
     Dates: start: 201306
  5. VITAMIN D [Concomitant]
     Route: 048
  6. METOPROLOL [Concomitant]
     Indication: HYPERTENSION
     Dosage: 100 MG
     Route: 048
  7. AMLODIPINE [Concomitant]
     Dosage: 10 MG
     Route: 048
  8. ASPIRIN [Concomitant]
     Dosage: 81 MG
     Route: 048

REACTIONS (12)
  - Transient ischaemic attack [Recovered/Resolved]
  - Transient ischaemic attack [Recovered/Resolved]
  - Paraesthesia [Recovered/Resolved]
  - Limb discomfort [Not Recovered/Not Resolved]
  - Dysphagia [Not Recovered/Not Resolved]
  - Cough [Not Recovered/Not Resolved]
  - Increased upper airway secretion [Not Recovered/Not Resolved]
  - Nausea [Not Recovered/Not Resolved]
  - Dysphonia [Not Recovered/Not Resolved]
  - Choking [Unknown]
  - Product quality issue [Unknown]
  - Product quality issue [Recovered/Resolved]
